FAERS Safety Report 13776377 (Version 1)
Quarter: 2017Q3

REPORT INFORMATION
  Report Type: Spontaneous
  Country: US (occurrence: US)
  Receive Date: 20170721
  Receipt Date: 20170721
  Transmission Date: 20171127
  Serious: No
  Sender: FDA-Public Use
  Company Number: US-JNJFOC-20170606912

PATIENT
  Sex: Male
  Weight: 92.99 kg

DRUGS (22)
  1. TRAMADOL HYDROCHLORIDE. [Suspect]
     Active Substance: TRAMADOL HYDROCHLORIDE
     Indication: PAIN
     Dosage: DOSE OF 50 MG, TWO EVERY MORNING AND TWO AT LUNCH
     Route: 048
     Dates: start: 201701
  2. PROBENECIDE [Concomitant]
     Active Substance: PROBENECID
     Indication: CHONDROCALCINOSIS PYROPHOSPHATE
     Dosage: TWO TABLETS IN THE MORNING AND TWO AT NIGHT, STARTED DRUG ABOUT 5 OR 6 YEARS AGO
     Route: 048
  3. VALTREX [Concomitant]
     Active Substance: VALACYCLOVIR HYDROCHLORIDE
     Indication: GENITAL HERPES
     Route: 048
     Dates: start: 1977
  4. ATORVASTATIN [Concomitant]
     Active Substance: ATORVASTATIN
     Indication: BLOOD CHOLESTEROL ABNORMAL
     Dosage: STARTED DRUG 5 OR 6 YEARS AGO
     Route: 048
  5. OCUVITE [Concomitant]
     Active Substance: VITAMINS
     Indication: MACULAR DEGENERATION
     Dosage: TOOK DRUG IN THE MORNING, STARTED DRUG ABOUT 10 TO 15 YEARS AGO
     Route: 048
  6. GABAPENTIN. [Concomitant]
     Active Substance: GABAPENTIN
     Indication: CHONDROCALCINOSIS PYROPHOSPHATE
     Dosage: STARTED DRUG 6 YEARS AGO
     Route: 048
  7. PANTOPRAZOLE [Concomitant]
     Active Substance: PANTOPRAZOLE
     Indication: DYSPEPSIA
     Dosage: STARTED DRUG ABOUT 10 YEARS AGO
     Route: 048
  8. ZYRTEC [Concomitant]
     Active Substance: CETIRIZINE HYDROCHLORIDE
     Indication: SEASONAL ALLERGY
     Dosage: ONCE A DAY IN THE MORNING
     Route: 048
  9. ASPIRIN. [Concomitant]
     Active Substance: ASPIRIN
     Indication: ANTICOAGULANT THERAPY
     Dosage: TOOK DRUG IN THE MORNING
     Route: 048
     Dates: start: 201107
  10. INDOMETHACIN. [Concomitant]
     Active Substance: INDOMETHACIN
     Indication: OSTEOARTHRITIS
     Dosage: FORMULATION: CAPSULE, STARTED DRUG ABOUT 10 YEARS AGO
     Route: 048
  11. CENTRUM SILVER [Concomitant]
     Active Substance: MINERALS\VITAMINS
     Indication: NUTRITIONAL SUPPLEMENTATION
     Dosage: STARTED ABOUT 25 YEARS AGO
     Route: 048
  12. CARVEDILOL. [Concomitant]
     Active Substance: CARVEDILOL
     Indication: CARDIAC DISORDER
     Dosage: ONCE A DAY IN THE MORNING, STARTED DRUG 5 OR 6 YEARS AGO
     Route: 048
  13. POTASSIUM [Concomitant]
     Active Substance: POTASSIUM
     Dosage: ONCE A DAY IN THE MORNING, STARTED DRUG ABOUT 6 YEARS AGO AT THE TIME OF THE REPORT
     Route: 048
  14. MELATONIN [Concomitant]
     Active Substance: MELATONIN
     Indication: SLEEP DISORDER
     Dosage: TOOK TWO TABLETS OF 5 MG EVERY NIGHT, STARTED ABOUT 10 YEARS AGO
     Route: 048
  15. CYCLOBENZAPRINE. [Concomitant]
     Active Substance: CYCLOBENZAPRINE
     Indication: MUSCLE RELAXANT THERAPY
     Dosage: STARTED DRUG ABOUT 6 MONTHS AGO
     Route: 048
  16. PANTOPRAZOLE [Concomitant]
     Active Substance: PANTOPRAZOLE
     Indication: DYSPEPSIA
     Dosage: STARTED DRUG ABOUT 10 YEARS AGO
     Route: 048
  17. COLACE [Concomitant]
     Active Substance: DOCUSATE SODIUM
     Indication: ABNORMAL FAECES
     Route: 048
  18. INDOMETHACIN. [Concomitant]
     Active Substance: INDOMETHACIN
     Indication: CHONDROCALCINOSIS PYROPHOSPHATE
     Dosage: FORMULATION: CAPSULE, STARTED DRUG ABOUT 10 YEARS AGO
     Route: 048
  19. GABAPENTIN. [Concomitant]
     Active Substance: GABAPENTIN
     Indication: OSTEOARTHRITIS
     Dosage: STARTED DRUG 6 YEARS AGO
     Route: 048
  20. PROBENECIDE [Concomitant]
     Active Substance: PROBENECID
     Indication: OSTEOARTHRITIS
     Dosage: TWO TABLETS IN THE MORNING AND TWO AT NIGHT, STARTED DRUG ABOUT 5 OR 6 YEARS AGO
     Route: 048
  21. CITALOPRAM [Concomitant]
     Active Substance: CITALOPRAM HYDROBROMIDE
     Indication: PANIC ATTACK
     Dosage: STARTED DRUG ABOUT 10 YEARS AGO
     Route: 048
  22. FUROSEMIDE. [Concomitant]
     Active Substance: FUROSEMIDE
     Indication: CARDIAC DISORDER
     Dosage: ONCE A DAY IN THE MORNING, STARTED DRUG 5 OR 6 YEARS AGO
     Route: 048

REACTIONS (3)
  - Constipation [Unknown]
  - Drug ineffective [Unknown]
  - Product label issue [Unknown]
